FAERS Safety Report 7151100-7 (Version None)
Quarter: 2010Q4

REPORT INFORMATION
  Report Type: 
  Country: None (occurrence: None)
  Receive Date: 20101210
  Receipt Date: 20101129
  Transmission Date: 20110411
  Serious: Yes (Hospitalization)
  Sender: FDA-Public Use
  Company Number: PHHY2010FR81942

PATIENT
  Age: 55 Year
  Sex: Male

DRUGS (4)
  1. RASILEZ [Suspect]
     Indication: HYPERTENSION
     Dosage: ONCE A DAY (TAKEN SINGLE DOSE IN THE EVENING)
     Route: 048
     Dates: start: 20101126
  2. BETA BLOCKING AGENTS [Concomitant]
  3. STATIN [Concomitant]
  4. ANTI-ANGINAL TREATMENT [Concomitant]

REACTIONS (1)
  - ACUTE MYOCARDIAL INFARCTION [None]
